FAERS Safety Report 5603085-X (Version None)
Quarter: 2008Q1

REPORT INFORMATION
  Report Type: 
  Country: None (occurrence: None)
  Receive Date: 20080125
  Receipt Date: 20080115
  Transmission Date: 20080703
  Serious: Yes (Hospitalization)
  Sender: FDA-Public Use
  Company Number: GB-PFIZER INC-2008004754

PATIENT
  Age: 39 Year
  Sex: Male

DRUGS (9)
  1. AMLODIPINE [Suspect]
     Dosage: DAILY DOSE:280MG
     Route: 048
  2. DOXAZOSIN [Suspect]
     Dosage: DAILY DOSE:112MG
     Route: 048
  3. ASPIRIN [Suspect]
     Dosage: DAILY DOSE:975MG
     Route: 048
  4. METFORMIN HCL [Suspect]
     Dosage: DAILY DOSE:6500MG
     Route: 048
  5. ADRENALINE [Concomitant]
  6. CALCIUM GLUCONATE [Concomitant]
  7. DEXTROSE [Concomitant]
  8. NORADRENALINE [Concomitant]
  9. POTASSIUM CHLORIDE [Concomitant]

REACTIONS (3)
  - HYPOGLYCAEMIA [None]
  - HYPOTENSION [None]
  - OVERDOSE [None]
